FAERS Safety Report 24818181 (Version 1)
Quarter: 2025Q1

REPORT INFORMATION
  Report Type: Spontaneous
  Country: SK (occurrence: SK)
  Receive Date: 20250108
  Receipt Date: 20250108
  Transmission Date: 20250408
  Serious: Yes (Hospitalization)
  Sender: JOHNSON AND JOHNSON
  Company Number: SK-JNJFOC-20250106041

PATIENT
  Age: 40 Year
  Sex: Male

DRUGS (8)
  1. STELARA [Suspect]
     Active Substance: USTEKINUMAB
     Indication: Psoriasis
     Route: 058
     Dates: start: 20210517
  2. VENTOLIN [Concomitant]
     Active Substance: ALBUTEROL SULFATE
  3. ASPIRIN\GLYCINE [Concomitant]
     Active Substance: ASPIRIN\GLYCINE
  4. TICAGRELOR [Concomitant]
     Active Substance: TICAGRELOR
  5. CONTROLOC [Concomitant]
     Active Substance: PANTOPRAZOLE SODIUM
  6. TORVACARD NEO [Concomitant]
  7. BISOPROLOL FUMARATE [Concomitant]
     Active Substance: BISOPROLOL FUMARATE
  8. COLCHICUM [Concomitant]
     Active Substance: COLCHICINE

REACTIONS (2)
  - Acute myocardial infarction [Unknown]
  - Off label use [Unknown]

NARRATIVE: CASE EVENT DATE: 20210517
